FAERS Safety Report 18570620 (Version 1)
Quarter: 2020Q4

REPORT INFORMATION
  Report Type: Spontaneous
  Country: JP (occurrence: JP)
  Receive Date: 20201202
  Receipt Date: 20201202
  Transmission Date: 20210114
  Serious: Yes (Other)
  Sender: FDA-Public Use
  Company Number: JP-EISAI MEDICAL RESEARCH-EC-2020-079546

PATIENT

DRUGS (2)
  1. LENVIMA [Suspect]
     Active Substance: LENVATINIB
     Indication: HEPATOCELLULAR CARCINOMA
     Dosage: DOSAGE AND FREQUENCY UNKNOWN
     Route: 048
  2. LENVIMA [Suspect]
     Active Substance: LENVATINIB
     Dosage: DOSAGE AND FREQUENCY UNKNOWN
     Route: 048

REACTIONS (1)
  - Hepatic haemorrhage [Recovered/Resolved]
